FAERS Safety Report 23891342 (Version 3)
Quarter: 2024Q4

REPORT INFORMATION
  Report Type: Spontaneous
  Country: CZ (occurrence: CZ)
  Receive Date: 20240523
  Receipt Date: 20241022
  Transmission Date: 20250115
  Serious: No
  Sender: AMGEN
  Company Number: CZ-AMGEN-CZESP2024095382

PATIENT
  Age: 73 Year
  Sex: Male

DRUGS (2)
  1. LUMAKRAS [Suspect]
     Active Substance: SOTORASIB
     Indication: Non-small cell lung cancer
     Dosage: 960 MILLIGRAM, QD ((8 TABLETS 1 TIMES A DAY)
     Route: 065
     Dates: start: 20221220
  2. LUMAKRAS [Suspect]
     Active Substance: SOTORASIB
     Indication: K-ras gene mutation

REACTIONS (4)
  - Diarrhoea [Unknown]
  - Hypertension [Recovered/Resolved]
  - Pruritus [Unknown]
  - Rash [Unknown]

NARRATIVE: CASE EVENT DATE: 20221201
